FAERS Safety Report 10225043 (Version 2)
Quarter: 2014Q3

REPORT INFORMATION
  Report Type: Spontaneous
  Country: US (occurrence: US)
  Receive Date: 20140609
  Receipt Date: 20140724
  Transmission Date: 20150326
  Serious: Yes (Hospitalization, Other)
  Sender: FDA-Public Use
  Company Number: PHEH2014US011391

PATIENT
  Age: 42 Year
  Sex: Female

DRUGS (3)
  1. VITAMIN D [Concomitant]
     Active Substance: CHOLECALCIFEROL
  2. GILENYA [Suspect]
     Active Substance: FINGOLIMOD HYDROCHLORIDE
     Indication: MULTIPLE SCLEROSIS
     Dosage: 0.5 MG, QD
     Route: 048
     Dates: start: 20140519, end: 20140525
  3. ORAL CONTRACEPTIVE NOS [Concomitant]
     Active Substance: UNSPECIFIED INGREDIENT

REACTIONS (9)
  - Psychogenic seizure [Recovered/Resolved]
  - Vision blurred [Unknown]
  - Blood pressure increased [Unknown]
  - Visual impairment [Unknown]
  - Bradycardia [Unknown]
  - Sensory disturbance [Unknown]
  - Disorientation [Unknown]
  - Syncope [Unknown]
  - Eye pain [Unknown]

NARRATIVE: CASE EVENT DATE: 20140525
